FAERS Safety Report 9131913 (Version 1)
Quarter: 2013Q1

REPORT INFORMATION
  Report Type: Report from Study
  Country: US (occurrence: US)
  Receive Date: 20130301
  Receipt Date: 20130301
  Transmission Date: 20140127
  Serious: No
  Sender: FDA-Public Use
  Company Number: US-MYLANLABS-2012S1021361

PATIENT
  Age: 56 Year
  Sex: Male
  Weight: 120 kg

DRUGS (4)
  1. AMNESTEEM CAPSULES [Suspect]
     Indication: ACNE CYSTIC
  2. AMNESTEEM CAPSULES [Suspect]
     Indication: ACNE CYSTIC
     Dates: end: 201208
  3. AMNESTEEM CAPSULES [Suspect]
     Indication: ACNE CYSTIC
     Dates: start: 201205
  4. PREDNISONE [Concomitant]
     Dates: start: 201206, end: 201208

REACTIONS (3)
  - Condition aggravated [Recovered/Resolved]
  - Acne cystic [Recovered/Resolved]
  - Hypertriglyceridaemia [Recovered/Resolved]
